FAERS Safety Report 5588759-1 (Version None)
Quarter: 2008Q1

REPORT INFORMATION
  Report Type: 
  Country: None (occurrence: None)
  Receive Date: 20080111
  Receipt Date: 20080103
  Transmission Date: 20080703
  Serious: Yes (Other)
  Sender: FDA-Public Use
  Company Number: B0376997A

PATIENT
  Sex: Female

DRUGS (4)
  1. PAROXETINE [Suspect]
     Route: 065
     Dates: start: 19970801
  2. PAROXETINE HYDROCHLORIDE [Suspect]
     Route: 065
  3. PROZAC [Concomitant]
     Route: 065
     Dates: start: 20040908
  4. LORAZEPAM [Concomitant]
     Dates: start: 20031010

REACTIONS (32)
  - AGGRESSION [None]
  - AGITATION [None]
  - ALTERED VISUAL DEPTH PERCEPTION [None]
  - ANGER [None]
  - CONFUSIONAL STATE [None]
  - CRYING [None]
  - DIARRHOEA [None]
  - DISTURBANCE IN ATTENTION [None]
  - DIZZINESS [None]
  - FATIGUE [None]
  - FLAT AFFECT [None]
  - HEADACHE [None]
  - HYPERHIDROSIS [None]
  - INFLUENZA [None]
  - INTENTIONAL SELF-INJURY [None]
  - LETHARGY [None]
  - LOSS OF LIBIDO [None]
  - MEMORY IMPAIRMENT [None]
  - MOOD SWINGS [None]
  - NAUSEA [None]
  - NIGHTMARE [None]
  - PALPITATIONS [None]
  - PANIC REACTION [None]
  - PARAESTHESIA [None]
  - PARANOIA [None]
  - PERSONALITY CHANGE [None]
  - PRURITUS [None]
  - SLEEP DISORDER [None]
  - SUICIDAL IDEATION [None]
  - TREMOR [None]
  - VISUAL DISTURBANCE [None]
  - WITHDRAWAL SYNDROME [None]
